FAERS Safety Report 16354893 (Version 2)
Quarter: 2019Q2

REPORT INFORMATION
  Report Type: Report from Study
  Country: US (occurrence: US)
  Receive Date: 20190524
  Receipt Date: 20190529
  Transmission Date: 20190711
  Serious: No
  Sender: FDA-Public Use
  Company Number: PHEH2019US022390

PATIENT
  Sex: Female

DRUGS (1)
  1. OLOPATADINE. [Suspect]
     Active Substance: OLOPATADINE
     Indication: PRODUCT USED FOR UNKNOWN INDICATION
     Dosage: UNK
     Route: 065
     Dates: start: 20181023, end: 20181119

REACTIONS (5)
  - Conjunctivitis allergic [Unknown]
  - Drug hypersensitivity [Unknown]
  - Drug intolerance [Unknown]
  - Eye irritation [Unknown]
  - Drug ineffective [Unknown]
